FAERS Safety Report 11025901 (Version 1)
Quarter: 2015Q2

REPORT INFORMATION
  Report Type: Spontaneous
  Country: US (occurrence: None)
  Receive Date: 20150413
  Receipt Date: 20150413
  Transmission Date: 20150821
  Serious: Yes (Life-Threatening, Hospitalization, Disabling)
  Sender: FDA-Public Use
  Company Number: None

PATIENT
  Age: 65 Year
  Sex: Female
  Weight: 57.15 kg

DRUGS (12)
  1. LISINIPRIL 5MG [Suspect]
     Active Substance: LISINOPRIL
     Indication: HYPERTENSION
     Dosage: 10 MG, 1 AT NIGHT 90 (BOTTLE), ONE AT BEDTIME, BY MOUTH
     Route: 048
     Dates: start: 20111205, end: 201503
  2. ZESTRIL [Suspect]
     Active Substance: LISINOPRIL
  3. FUROSEMIDE. [Concomitant]
     Active Substance: FUROSEMIDE
  4. IRON [Concomitant]
     Active Substance: IRON
  5. NITROSTAT [Concomitant]
     Active Substance: NITROGLYCERIN
  6. ZANTAC [Concomitant]
     Active Substance: RANITIDINE HYDROCHLORIDE
  7. CARVEDILOL. [Concomitant]
     Active Substance: CARVEDILOL
  8. BABY ASPIRIN [Concomitant]
     Active Substance: ASPIRIN
  9. D3 1,000 [Concomitant]
  10. PANTROPROZOLE [Concomitant]
  11. PRINIVIL [Suspect]
     Active Substance: LISINOPRIL
  12. 1,000 + D CALCIUM [Concomitant]

REACTIONS (25)
  - Pancreatitis [None]
  - Haematemesis [None]
  - Peripheral swelling [None]
  - Dry mouth [None]
  - Dysphagia [None]
  - Nausea [None]
  - Paraesthesia [None]
  - Myocardial infarction [None]
  - Muscle spasms [None]
  - Gastric dilatation [None]
  - Muscular weakness [None]
  - Overdose [None]
  - Sleep disorder [None]
  - Lip swelling [None]
  - Aphonia [None]
  - Therapy change [None]
  - Anaemia [None]
  - Cough [None]
  - Blood pressure increased [None]
  - Arthritis [None]
  - Hypotension [None]
  - Throat tightness [None]
  - Oral pain [None]
  - Unevaluable event [None]
  - Depression [None]

NARRATIVE: CASE EVENT DATE: 20111205
